FAERS Safety Report 17814416 (Version 1)
Quarter: 2020Q2

REPORT INFORMATION
  Report Type: Report from Study
  Country: KR (occurrence: KR)
  Receive Date: 20200522
  Receipt Date: 20200522
  Transmission Date: 20200714
  Serious: Yes (Hospitalization)
  Sender: FDA-Public Use
  Company Number: KR-ROCHE-2600549

PATIENT
  Age: 68 Year
  Sex: Female
  Weight: 52.5 kg

DRUGS (4)
  1. ATEZOLIZUMAB. [Suspect]
     Active Substance: ATEZOLIZUMAB
     Indication: NON-SMALL CELL LUNG CANCER
     Dosage: DATE OF LAST DOSE OF ATEZOLIZUMAB PRIOR TO SAE: 21/APR/2020
     Route: 042
     Dates: start: 20200122
  2. BEVACIZUMAB. [Suspect]
     Active Substance: BEVACIZUMAB
     Indication: NON-SMALL CELL LUNG CANCER
     Dosage: DATE OF LAST DOSE OF BEVACIZUMAB PRIOR TO SAE ONSET: 21/APR/2020
     Route: 042
     Dates: start: 20200122
  3. PACLITAXEL. [Suspect]
     Active Substance: PACLITAXEL
     Indication: NON-SMALL CELL LUNG CANCER
     Dosage: DATE OF MOST RECENT DOSE OF PACLITAXEL PRIOR TO SAE ONSET: 01/APR/2020
     Route: 042
     Dates: start: 20200122
  4. CARBOPLATIN. [Suspect]
     Active Substance: CARBOPLATIN
     Indication: NON-SMALL CELL LUNG CANCER
     Dosage: DATE OF LAST DOSE OF CARBOPLATIN (594 MG) PRIOR TO SAE: 01/APR/2020
     Route: 042
     Dates: start: 20200122

REACTIONS (2)
  - Hyponatraemia [Not Recovered/Not Resolved]
  - Adrenal insufficiency [Recovering/Resolving]

NARRATIVE: CASE EVENT DATE: 20200512
